FAERS Safety Report 23606120 (Version 2)
Quarter: 2024Q2

REPORT INFORMATION
  Report Type: Spontaneous
  Country: US (occurrence: US)
  Receive Date: 20240307
  Receipt Date: 20240603
  Transmission Date: 20240715
  Serious: Yes (Hospitalization, Other)
  Sender: FDA-Public Use
  Company Number: US-PFIZER INC-PV202300123889

PATIENT
  Age: 72 Year
  Sex: Male
  Weight: 116.57 kg

DRUGS (2)
  1. INLYTA [Suspect]
     Active Substance: AXITINIB
     Indication: Renal cancer metastatic
     Dosage: 5 MG, 2X/DAY
     Route: 048
  2. INLYTA [Suspect]
     Active Substance: AXITINIB
     Dosage: 3 MG, 2X/DAY (EVERY 12 HOURS)
     Route: 048
     Dates: start: 2022

REACTIONS (7)
  - Fall [Recovering/Resolving]
  - Joint swelling [Recovering/Resolving]
  - Arthritis infective [Recovering/Resolving]
  - Device related infection [Recovering/Resolving]
  - Wound infection [Recovering/Resolving]
  - Brain injury [Unknown]
  - Memory impairment [Unknown]

NARRATIVE: CASE EVENT DATE: 20240101
